FAERS Safety Report 8583183-1 (Version None)
Quarter: 2012Q3

REPORT INFORMATION
  Report Type: 
  Country: None (occurrence: None)
  Receive Date: 20120727
  Receipt Date: 20120711
  Transmission Date: 20120928
  Serious: Yes (Other)
  Sender: FDA-Public Use
  Company Number: THQ2012A06230

PATIENT
  Age: 42 Year
  Sex: Female

DRUGS (1)
  1. LANSOPRAZOLE [Suspect]
     Indication: OESOPHAGITIS
     Dosage: (30 MG) PER ORAL
     Route: 048
     Dates: start: 20050101, end: 20120301

REACTIONS (3)
  - DRUG HYPERSENSITIVITY [None]
  - ECZEMA [None]
  - RASH PRURITIC [None]
